FAERS Safety Report 19502162 (Version 2)
Quarter: 2021Q3

REPORT INFORMATION
  Report Type: Spontaneous
  Country: AU (occurrence: AU)
  Receive Date: 20210707
  Receipt Date: 20210806
  Transmission Date: 20211014
  Serious: Yes (Other)
  Sender: FDA-Public Use
  Company Number: AU-ASTELLAS-2021US025027

PATIENT
  Age: 73 Year
  Sex: Male

DRUGS (4)
  1. PREDNISOLONE. [Concomitant]
     Active Substance: PREDNISOLONE
     Indication: RENAL TRANSPLANT
     Route: 065
  2. MYCOPHENOLATE MOFETIL. [Concomitant]
     Active Substance: MYCOPHENOLATE MOFETIL
     Indication: RENAL TRANSPLANT
     Route: 065
  3. TACROLIMUS. [Suspect]
     Active Substance: TACROLIMUS
     Indication: RENAL TRANSPLANT
     Route: 065
  4. AZATHIOPRINE. [Concomitant]
     Active Substance: AZATHIOPRINE
     Indication: RENAL TRANSPLANT
     Route: 065

REACTIONS (10)
  - Urinary tract infection [Recovered/Resolved]
  - Pseudomonas infection [Recovered/Resolved]
  - Urinary tract infection bacterial [Recovered/Resolved]
  - Escherichia infection [Recovered/Resolved]
  - Pyelonephritis [Recovered/Resolved]
  - Complications of transplanted kidney [Recovered/Resolved]
  - Enterobacter bacteraemia [Recovered/Resolved]
  - Device related infection [Recovered/Resolved]
  - Enterobacter infection [Recovered/Resolved]
  - Anorectal infection bacterial [Recovered/Resolved]
